FAERS Safety Report 4274633-X (Version None)
Quarter: 2004Q1

REPORT INFORMATION
  Report Type: 
  Country: None (occurrence: None)
  Receive Date: 20040115
  Receipt Date: 20031231
  Transmission Date: 20041129
  Serious: Yes (Life-Threatening, Hospitalization)
  Sender: FDA-Public Use
  Company Number: 2003SE05683

PATIENT
  Age: 73 Year
  Sex: Female
  Weight: 56 kg

DRUGS (10)
  1. BLOPRESS [Suspect]
     Indication: HYPERTENSION
     Dosage: 4 MG QD PO
     Route: 048
     Dates: start: 20031001, end: 20031028
  2. BLOPRESS [Suspect]
     Indication: HYPERTENSION
     Dosage: 8 MG QD PO
     Route: 048
     Dates: start: 20031029, end: 20031125
  3. BLOPRESS [Suspect]
     Indication: HYPERTENSION
     Dosage: 12 MG QD PO
     Route: 048
     Dates: start: 20031126, end: 20031209
  4. AMLODIPINE BESYLATE [Concomitant]
  5. TEPRENONE [Concomitant]
  6. ETIZOLAM [Concomitant]
  7. JUVELA NICOTINATE [Concomitant]
  8. PL GRAN. [Concomitant]
  9. CARBOCISTEINE [Concomitant]
  10. POLYCARBOPHIL CALCIUM [Concomitant]

REACTIONS (2)
  - BLOOD PRESSURE SYSTOLIC INCREASED [None]
  - IDIOPATHIC THROMBOCYTOPENIC PURPURA [None]
